FAERS Safety Report 12738853 (Version 1)
Quarter: 2016Q3

REPORT INFORMATION
  Report Type: Report from Study
  Country: TR (occurrence: TR)
  Receive Date: 20160912
  Receipt Date: 20160912
  Transmission Date: 20161109
  Serious: Yes (Hospitalization)
  Sender: FDA-Public Use
  Company Number: TR-IPCA LABORATORIES LIMITED-IPC201609-000738

PATIENT

DRUGS (3)
  1. VALSARTAN. [Suspect]
     Active Substance: VALSARTAN
  2. DICLOFENAC [Suspect]
     Active Substance: DICLOFENAC
  3. HYDROCHLOROTHIAZIDE. [Suspect]
     Active Substance: HYDROCHLOROTHIAZIDE

REACTIONS (2)
  - Acute kidney injury [Unknown]
  - Drug interaction [Unknown]
